FAERS Safety Report 25824379 (Version 1)
Quarter: 2025Q3

REPORT INFORMATION
  Report Type: Spontaneous
  Country: US (occurrence: US)
  Receive Date: 20250919
  Receipt Date: 20250919
  Transmission Date: 20251021
  Serious: No
  Sender: SANOFI AVENTIS
  Company Number: US-SA-2025SA278989

PATIENT
  Sex: Female
  Weight: 94.8 kg

DRUGS (6)
  1. DUPIXENT [Suspect]
     Active Substance: DUPILUMAB
     Indication: Chronic rhinosinusitis with nasal polyps
     Dosage: 300 MG, QOW
     Route: 058
  2. TUMS [Concomitant]
     Active Substance: CALCIUM CARBONATE
  3. TYLENOL [Concomitant]
     Active Substance: ACETAMINOPHEN
  4. NASAL RELIEF (OXYMETAZOLINE HYDROCHLORIDE) [Concomitant]
     Active Substance: OXYMETAZOLINE HYDROCHLORIDE
  5. DICLOFENAC POTASSIUM [Concomitant]
     Active Substance: DICLOFENAC POTASSIUM
  6. VITAMIN D2 [Concomitant]
     Active Substance: ERGOCALCIFEROL

REACTIONS (3)
  - Sneezing [Recovered/Resolved]
  - Food allergy [Recovered/Resolved]
  - Abdominal distension [Recovered/Resolved]
